FAERS Safety Report 17745126 (Version 11)
Quarter: 2021Q1

REPORT INFORMATION
  Report Type: Report from Study
  Country: CA (occurrence: CA)
  Receive Date: 20200504
  Receipt Date: 20210318
  Transmission Date: 20210419
  Serious: Yes (Other)
  Sender: FDA-Public Use
  Company Number: PHHY2013CA041363

PATIENT
  Age: 61 Year
  Sex: Female

DRUGS (6)
  1. SANDOSTATIN LAR DEPOT [Suspect]
     Active Substance: OCTREOTIDE ACETATE
     Indication: NEUROENDOCRINE TUMOUR
     Dosage: 30 MG, Q4W
     Route: 030
     Dates: start: 20080720
  2. SANDOSTATIN LAR DEPOT [Suspect]
     Active Substance: OCTREOTIDE ACETATE
  3. NORVASC [Concomitant]
     Active Substance: AMLODIPINE BESYLATE
     Indication: BLOOD PRESSURE ABNORMAL
     Dosage: 2.5 MG, QD
     Route: 065
     Dates: start: 20170424, end: 20180122
  4. JANUVIA [Concomitant]
     Active Substance: SITAGLIPTIN PHOSPHATE
     Indication: PRODUCT USED FOR UNKNOWN INDICATION
     Dosage: 25 MG, QD
     Route: 065
     Dates: start: 2019
  5. METFORMIN [Concomitant]
     Active Substance: METFORMIN HYDROCHLORIDE
     Indication: PRODUCT USED FOR UNKNOWN INDICATION
     Dosage: UNK
     Route: 065
     Dates: start: 2019, end: 2019
  6. SANDOSTATIN LAR DEPOT [Suspect]
     Active Substance: OCTREOTIDE ACETATE

REACTIONS (19)
  - Heart rate decreased [Unknown]
  - Fatigue [Unknown]
  - Gout [Unknown]
  - Sciatica [Recovering/Resolving]
  - Pruritus [Unknown]
  - Migraine [Unknown]
  - Body temperature decreased [Unknown]
  - Pain [Unknown]
  - Injection site swelling [Unknown]
  - Haemorrhoids [Unknown]
  - Injection site pain [Unknown]
  - Blood calcium increased [Unknown]
  - Muscle spasms [Unknown]
  - Blood pressure systolic increased [Unknown]
  - Cystitis [Unknown]
  - Blood pressure increased [Unknown]
  - Blood uric acid increased [Unknown]
  - Needle issue [Unknown]
  - Nausea [Unknown]

NARRATIVE: CASE EVENT DATE: 20131109
